FAERS Safety Report 6337826-3 (Version None)
Quarter: 2009Q3

REPORT INFORMATION
  Report Type: 
  Country: None (occurrence: None)
  Receive Date: 20090902
  Receipt Date: 20090831
  Transmission Date: 20100115
  Serious: Yes (Hospitalization)
  Sender: FDA-Public Use
  Company Number: A0805066A

PATIENT
  Age: 54 Year
  Sex: Male
  Weight: 63.5 kg

DRUGS (9)
  1. KIVEXA [Suspect]
     Indication: DRUG USE FOR UNKNOWN INDICATION
     Dosage: 1TAB PER DAY
     Route: 048
  2. ASPIRIN [Concomitant]
     Route: 048
  3. CARVEDILOL [Concomitant]
     Route: 048
  4. CRESTOR [Concomitant]
     Route: 048
  5. MULTI-VITAMINS [Concomitant]
  6. RAMIPRIL [Concomitant]
     Route: 048
  7. SPIRONOLACTONE [Concomitant]
     Route: 048
  8. SUSTIVA [Concomitant]
     Route: 048
  9. VENLAFAXINE HYDROCHLORIDE [Concomitant]
     Route: 048

REACTIONS (3)
  - CHEST PAIN [None]
  - ELECTROCARDIOGRAM ST SEGMENT ELEVATION [None]
  - ELECTROCARDIOGRAM T WAVE ABNORMAL [None]
